FAERS Safety Report 20138734 (Version 4)
Quarter: 2022Q1

REPORT INFORMATION
  Report Type: Report from Study
  Country: DO (occurrence: DO)
  Receive Date: 20211202
  Receipt Date: 20220120
  Transmission Date: 20220423
  Serious: Yes (Hospitalization, Other)
  Sender: FDA-Public Use
  Company Number: DO-NOVARTISPH-PHHY2019DO152742

PATIENT
  Age: 34 Year
  Sex: Female

DRUGS (4)
  1. GILENYA [Suspect]
     Active Substance: FINGOLIMOD HYDROCHLORIDE
     Indication: Relapsing-remitting multiple sclerosis
     Dosage: 0.5 MG, QD
     Route: 048
     Dates: start: 20171006, end: 202111
  2. GILENYA [Suspect]
     Active Substance: FINGOLIMOD HYDROCHLORIDE
     Indication: Multiple sclerosis
     Dosage: 0.5 MG, QD
     Route: 048
     Dates: start: 20210311
  3. GILENYA [Suspect]
     Active Substance: FINGOLIMOD HYDROCHLORIDE
     Dosage: 0.5 MG, QD
     Route: 048
     Dates: start: 20210826
  4. GILENYA [Suspect]
     Active Substance: FINGOLIMOD HYDROCHLORIDE
     Dosage: 0.5 MG, QD, 3 YEARS AGO APPROXIMATELY
     Route: 048

REACTIONS (16)
  - Multiple sclerosis relapse [Unknown]
  - Muscular weakness [Recovering/Resolving]
  - Multiple sclerosis relapse [Recovered/Resolved]
  - Asthenia [Unknown]
  - Dysarthria [Unknown]
  - Malaise [Unknown]
  - Feeling abnormal [Recovering/Resolving]
  - Weight increased [Unknown]
  - Fear [Unknown]
  - Obesity [Unknown]
  - Nervousness [Unknown]
  - Temperature intolerance [Unknown]
  - Central nervous system lesion [Unknown]
  - Fatigue [Unknown]
  - Product availability issue [Unknown]
  - Product dose omission issue [Unknown]

NARRATIVE: CASE EVENT DATE: 20200326
